FAERS Safety Report 11538800 (Version 2)
Quarter: 2015Q4

REPORT INFORMATION
  Report Type: Spontaneous
  Country: DE (occurrence: None)
  Receive Date: 20150921
  Receipt Date: 20151013
  Transmission Date: 20160304
  Serious: Yes (Other)
  Sender: FDA-Public Use
  Company Number: 2015GB0529

PATIENT
  Age: 10 Year
  Sex: Male

DRUGS (1)
  1. ANAKINRA (ANAKINRA) [Suspect]
     Active Substance: ANAKINRA
     Indication: JUVENILE IDIOPATHIC ARTHRITIS
     Dosage: (100 MG, 1 IN 1 D)
     Route: 058
     Dates: start: 201412

REACTIONS (3)
  - Thrombocytopenia [None]
  - Skin haemorrhage [None]
  - Mucosal haemorrhage [None]

NARRATIVE: CASE EVENT DATE: 20150123
